FAERS Safety Report 13370723 (Version 6)
Quarter: 2017Q2

REPORT INFORMATION
  Report Type: Spontaneous
  Country: DE (occurrence: DE)
  Receive Date: 20170324
  Receipt Date: 20170509
  Transmission Date: 20170830
  Serious: Yes (Life-Threatening, Hospitalization)
  Sender: FDA-Public Use
  Company Number: PHHY2017DE044579

PATIENT
  Sex: Female
  Weight: 63.3 kg

DRUGS (7)
  1. MTX [Concomitant]
     Active Substance: METHOTREXATE SODIUM
     Indication: JUVENILE IDIOPATHIC ARTHRITIS
     Dosage: 15 MG, WEEKLY
     Route: 065
     Dates: start: 20050101
  2. FOLIC [Concomitant]
     Active Substance: FOLIC ACID
     Indication: JUVENILE IDIOPATHIC ARTHRITIS
     Dosage: 5 MG, WEEKLY
     Route: 048
     Dates: start: 20050101
  3. IBUPROFEN. [Suspect]
     Active Substance: IBUPROFEN
     Dosage: 1 DF, QD
     Route: 048
  4. ILARIS [Suspect]
     Active Substance: CANAKINUMAB
     Indication: JUVENILE IDIOPATHIC ARTHRITIS
     Dosage: 248 MG, (EVERY 04 WEEKS)
     Route: 042
     Dates: start: 20110316
  5. IBUPROFEN. [Suspect]
     Active Substance: IBUPROFEN
     Indication: JUVENILE IDIOPATHIC ARTHRITIS
     Dosage: 1 DF, QD
     Route: 048
     Dates: start: 20111201
  6. IBUPROFEN. [Suspect]
     Active Substance: IBUPROFEN
     Dosage: 40 DF, UNK
     Route: 065
     Dates: start: 20120130
  7. PREDNISOLONE. [Concomitant]
     Active Substance: PREDNISOLONE
     Indication: JUVENILE IDIOPATHIC ARTHRITIS
     Dosage: 10 MG, QD
     Route: 048
     Dates: start: 20050101

REACTIONS (16)
  - Pain [Recovered/Resolved]
  - Blood creatine phosphokinase increased [Recovered/Resolved]
  - Condition aggravated [Recovered/Resolved]
  - Serum ferritin increased [Recovered/Resolved]
  - Arthralgia [Unknown]
  - Suicide attempt [Recovered/Resolved]
  - Drug reaction with eosinophilia and systemic symptoms [Recovered/Resolved]
  - C-reactive protein increased [Recovered/Resolved]
  - Alanine aminotransferase increased [Recovered/Resolved]
  - Rash [Recovered/Resolved]
  - Blood disorder [Recovered/Resolved]
  - White blood cell count decreased [Recovered/Resolved]
  - Incorrect route of drug administration [Unknown]
  - Platelet count decreased [Recovered/Resolved]
  - Aspartate aminotransferase increased [Recovered/Resolved]
  - Blood lactate dehydrogenase increased [Recovered/Resolved]

NARRATIVE: CASE EVENT DATE: 20110316
